FAERS Safety Report 17716780 (Version 1)
Quarter: 2020Q2

REPORT INFORMATION
  Report Type: Spontaneous
  Country: US (occurrence: US)
  Receive Date: 20200428
  Receipt Date: 20200428
  Transmission Date: 20200714
  Serious: Yes (Other)
  Sender: FDA-Public Use
  Company Number: US-ASTELLAS-2020US014617

PATIENT
  Age: 91 Year
  Sex: Male

DRUGS (1)
  1. XTANDI [Suspect]
     Active Substance: ENZALUTAMIDE
     Indication: PRODUCT USED FOR UNKNOWN INDICATION
     Route: 065
     Dates: start: 20200410

REACTIONS (11)
  - Urinary tract infection [Unknown]
  - Diarrhoea [Unknown]
  - Hypertension [Unknown]
  - Oedema peripheral [Unknown]
  - Dizziness [Unknown]
  - Influenza like illness [Unknown]
  - Hot flush [Unknown]
  - Fluid retention [Unknown]
  - Arthralgia [Unknown]
  - Pericardial effusion [Unknown]
  - Malaise [Unknown]
